FAERS Safety Report 8831771 (Version 1)
Quarter: 2012Q4

REPORT INFORMATION
  Report Type: 
  Country: US (occurrence: US)
  Receive Date: 20121009
  Receipt Date: 20121009
  Transmission Date: 20130627
  Serious: Yes (Other)
  Sender: FDA-Public Use
  Company Number: US-B.I. PHARMACEUTICALS,INC./RIDGEFIELD-2012-EU-05028GD

PATIENT

DRUGS (2)
  1. DABIGATRAN [Suspect]
     Indication: ATRIAL FIBRILLATION
     Route: 048
  2. HEPARIN [Suspect]
     Indication: ANTICOAGULANT THERAPY
     Dosage: initial bolus of 70 units/kg followed by a maintenance drip at 12U/kg/h with a target ACT of }350s
     Route: 042

REACTIONS (1)
  - Cardiac tamponade [Unknown]
